FAERS Safety Report 19269055 (Version 1)
Quarter: 2021Q2

REPORT INFORMATION
  Report Type: Spontaneous
  Country: US (occurrence: US)
  Receive Date: 20210518
  Receipt Date: 20210518
  Transmission Date: 20210717
  Serious: No
  Sender: FDA-Public Use
  Company Number: None

PATIENT
  Age: 48 Year
  Sex: Female
  Weight: 63 kg

DRUGS (16)
  1. MAGNESIUM [Concomitant]
     Active Substance: MAGNESIUM
  2. LORATADINE. [Concomitant]
     Active Substance: LORATADINE
  3. ATROVENT HFA [Concomitant]
     Active Substance: IPRATROPIUM BROMIDE
  4. MULTIVITAMIN [Concomitant]
     Active Substance: VITAMINS
  5. NABUMETONE. [Concomitant]
     Active Substance: NABUMETONE
  6. PRILOSEC [Concomitant]
     Active Substance: OMEPRAZOLE MAGNESIUM
  7. CALCIUM [Concomitant]
     Active Substance: CALCIUM
  8. VITAMIN D BIOTIN [Concomitant]
  9. PROBIOTICS [Concomitant]
     Active Substance: PROBIOTICS NOS
  10. ALBUTERNOL [Concomitant]
  11. ADVAIR HFA [Concomitant]
     Active Substance: FLUTICASONE PROPIONATE\SALMETEROL XINAFOATE
  12. OMEGA?3 GUMMY VITAMIN [Concomitant]
  13. MONTELUKAST 5MG CHEWABLE TABLET (GENERIC FOR SINGULAIR) [Suspect]
     Active Substance: MONTELUKAST SODIUM
     Indication: ASTHMA
     Dosage: ?          QUANTITY:1 TABLET(S);?
     Route: 048
     Dates: start: 20210506, end: 20210510
  14. ADDERALL [Concomitant]
     Active Substance: AMPHETAMINE ASPARTATE\AMPHETAMINE SULFATE\DEXTROAMPHETAMINE SACCHARATE\DEXTROAMPHETAMINE SULFATE
  15. TUMERIC [Concomitant]
     Active Substance: HERBALS\TURMERIC
  16. GUMMY MELATONIN [Concomitant]

REACTIONS (12)
  - Disturbance in attention [None]
  - Palpitations [None]
  - Insomnia [None]
  - Agitation [None]
  - Paranoia [None]
  - Heart rate increased [None]
  - Irritability [None]
  - Depression [None]
  - Depressed mood [None]
  - Attention deficit hyperactivity disorder [None]
  - Asthma [None]
  - Condition aggravated [None]

NARRATIVE: CASE EVENT DATE: 20210510
